FAERS Safety Report 7214603-2 (Version None)
Quarter: 2011Q1

REPORT INFORMATION
  Report Type: 
  Country: None (occurrence: None)
  Receive Date: 20110107
  Receipt Date: 20101230
  Transmission Date: 20110831
  Serious: Yes (Other)
  Sender: FDA-Public Use
  Company Number: FR-JNJFOC-20101209186

PATIENT
  Age: 43 Year
  Sex: Female

DRUGS (1)
  1. REMICADE [Suspect]
     Indication: ANKYLOSING SPONDYLITIS
     Route: 042

REACTIONS (4)
  - DEMYELINATION [None]
  - CELL DEATH [None]
  - ANTINUCLEAR ANTIBODY POSITIVE [None]
  - ANTIPHOSPHOLIPID ANTIBODIES POSITIVE [None]
